FAERS Safety Report 9915229 (Version 2)
Quarter: 2014Q1

REPORT INFORMATION
  Report Type: Report from Study
  Country: IT (occurrence: IT)
  Receive Date: 20140220
  Receipt Date: 20140220
  Transmission Date: 20141002
  Serious: Yes (Other)
  Sender: FDA-Public Use
  Company Number: IT-ROCHE-1095447

PATIENT
  Age: 79 Year
  Sex: Male

DRUGS (4)
  1. VEMURAFENIB [Suspect]
     Indication: MALIGNANT MELANOMA
     Route: 048
     Dates: start: 20120613, end: 20120627
  2. VEMURAFENIB [Suspect]
     Route: 048
     Dates: start: 20120705, end: 20120718
  3. VEMURAFENIB [Suspect]
     Route: 048
     Dates: start: 20120722
  4. LASIX [Concomitant]
     Indication: OEDEMA
     Route: 048
     Dates: start: 20120814, end: 20120816

REACTIONS (14)
  - Rash [Recovered/Resolved]
  - Lip swelling [Recovering/Resolving]
  - Abdominal pain upper [Unknown]
  - Squamous cell carcinoma [Recovering/Resolving]
  - Arthralgia [Recovering/Resolving]
  - Skin toxicity [Recovering/Resolving]
  - Photosensitivity reaction [Recovering/Resolving]
  - Decreased appetite [Recovering/Resolving]
  - Weight decreased [Recovering/Resolving]
  - Libido decreased [Not Recovered/Not Resolved]
  - Hyperkeratosis [Recovered/Resolved]
  - Diarrhoea [Recovered/Resolved]
  - Oedema [Recovered/Resolved]
  - Asthenia [Not Recovered/Not Resolved]
